FAERS Safety Report 17370003 (Version 1)
Quarter: 2020Q1

REPORT INFORMATION
  Report Type: Spontaneous
  Country: DK (occurrence: DK)
  Receive Date: 20200205
  Receipt Date: 20200205
  Transmission Date: 20200409
  Serious: Yes (Other)
  Sender: FDA-Public Use
  Company Number: DK-TEVA-2020-DK-1181223

PATIENT
  Age: 68 Year
  Sex: Female

DRUGS (4)
  1. PREDNISOLONE. [Suspect]
     Active Substance: PREDNISOLONE
     Indication: MYALGIA
     Dosage: STRENGTH: UNKNOWN. DOSAGE: VARYING
     Route: 048
     Dates: start: 20160823
  2. VEPICOMBIN NOVUM [Concomitant]
     Active Substance: PENICILLIN V POTASSIUM
     Indication: BORRELIA INFECTION
     Dosage: STRENGTH: UNKNOWN. DOSAGE: UNKNOWN
     Dates: start: 20161028, end: 20161107
  3. ELTROXIN [Concomitant]
     Active Substance: LEVOTHYROXINE
     Indication: HYPOTHYROIDISM
     Dosage: DOSAGE: ALTERNATE 2 AND 3 TABLETS.
     Route: 048
     Dates: start: 20140818
  4. RITALIN [Concomitant]
     Active Substance: METHYLPHENIDATE HYDROCHLORIDE
     Indication: NARCOLEPSY
     Dosage: 10 MG.
     Route: 048
     Dates: start: 2010

REACTIONS (6)
  - Heel fat pad syndrome [Unknown]
  - Extraocular muscle disorder [Unknown]
  - Diplopia [Recovering/Resolving]
  - Nail disorder [Unknown]
  - Cataract [Unknown]
  - Hair disorder [Unknown]
